FAERS Safety Report 8933929 (Version 1)
Quarter: 2012Q4

REPORT INFORMATION
  Report Type: 
  Country: BR (occurrence: BR)
  Receive Date: 20121129
  Receipt Date: 20121129
  Transmission Date: 20130627
  Serious: Yes (Hospitalization)
  Sender: FDA-Public Use
  Company Number: BR-PFIZER INC-2012297027

PATIENT
  Age: 82 Year
  Sex: Male
  Weight: 74 kg

DRUGS (2)
  1. LYRICA [Suspect]
     Indication: ERYTHROMELALGIA
     Dosage: 1 capsule (150 mg), 1x/day
     Route: 048
     Dates: start: 2010, end: 201211
  2. RIVOTRIL [Concomitant]
     Indication: SLEEP DISORDER
     Dosage: 1mg (half tablet or capsule of 2 mg) 1x/day

REACTIONS (2)
  - Atrioventricular block [Unknown]
  - Off label use [Recovered/Resolved]
